FAERS Safety Report 7327132-2 (Version None)
Quarter: 2011Q1

REPORT INFORMATION
  Report Type: 
  Country: None (occurrence: None)
  Receive Date: 20110302
  Receipt Date: 20110223
  Transmission Date: 20110831
  Serious: Yes (Other)
  Sender: FDA-Public Use
  Company Number: US-US-EMD SERONO, INC.-7043521

PATIENT
  Sex: Female
  Weight: 76 kg

DRUGS (1)
  1. REBIF [Suspect]
     Indication: PRODUCT USED FOR UNKNOWN INDICATION
     Route: 058
     Dates: start: 20080811

REACTIONS (3)
  - FALL [None]
  - CARTILAGE INJURY [None]
  - INJECTION SITE REACTION [None]
